FAERS Safety Report 8343466-7 (Version None)
Quarter: 2012Q2

REPORT INFORMATION
  Report Type: 
  Country: None (occurrence: None)
  Receive Date: 20120508
  Receipt Date: 20100510
  Transmission Date: 20120825
  Serious: Yes (Hospitalization)
  Sender: FDA-Public Use
  Company Number: US-TEVA-2010002671

PATIENT
  Age: 65 Year
  Sex: Female
  Weight: 71.278 kg

DRUGS (2)
  1. RITUXAN [Concomitant]
     Dates: start: 20100329, end: 20100427
  2. TREANDA [Suspect]
     Indication: NON-HODGKIN'S LYMPHOMA
     Route: 042
     Dates: start: 20100329, end: 20100428

REACTIONS (1)
  - PYREXIA [None]
